FAERS Safety Report 22358829 (Version 1)
Quarter: 2023Q2

REPORT INFORMATION
  Report Type: Spontaneous
  Country: US (occurrence: US)
  Receive Date: 20230524
  Receipt Date: 20230524
  Transmission Date: 20230721
  Serious: Yes (Other)
  Sender: FDA-Public Use
  Company Number: US-UCBSA-2022063383

PATIENT
  Age: 44 Year
  Sex: Male
  Weight: 108.84 kg

DRUGS (2)
  1. CIMZIA [Suspect]
     Active Substance: CERTOLIZUMAB PEGOL
     Indication: Psoriatic arthropathy
     Dosage: 200 MILLIGRAM, EV 2 WEEKS(QOW)
     Route: 058
     Dates: start: 20150911, end: 2017
  2. MEPERGAN [Concomitant]
     Active Substance: MEPERIDINE HYDROCHLORIDE\PROMETHAZINE HYDROCHLORIDE
     Indication: Product used for unknown indication

REACTIONS (7)
  - Psoriatic arthropathy [Unknown]
  - Back pain [Unknown]
  - Neck pain [Unknown]
  - Anxiety [Unknown]
  - Depression [Unknown]
  - Meniscus injury [Unknown]
  - Drug ineffective [Unknown]

NARRATIVE: CASE EVENT DATE: 20150911
